FAERS Safety Report 8682125 (Version 3)
Quarter: 2012Q4

REPORT INFORMATION
  Report Type: Spontaneous
  Country: JP (occurrence: None)
  Receive Date: 20120709
  Receipt Date: 20120924
  Transmission Date: 20130627
  Serious: Yes (Other)
  Sender: FDA-Public Use
  Company Number: JP-2012-15632

PATIENT
  Age: 4 Year
  Sex: Male
  Weight: 13.6 kg

DRUGS (6)
  1. SAMSCA [Suspect]
     Route: 048
  2. SAMSCA [Suspect]
     Route: 048
  3. SAMSCA [Suspect]
     Route: 048
  4. LOOP DIURETICS (LOOP DIURETICS) [Concomitant]
  5. POTASSIUM SPARING DIURETICS (POTASSIUM SPARING DIURETICS) [Concomitant]
  6. THIAZIDE DIURETICS (THIAZIDE DIURETICS) [Concomitant]

REACTIONS (4)
  - Oliguria [None]
  - Continuous haemodiafiltration [None]
  - No therapeutic response [None]
  - Renal disorder [None]
